FAERS Safety Report 18972625 (Version 1)
Quarter: 2021Q1

REPORT INFORMATION
  Report Type: Spontaneous
  Country: US (occurrence: US)
  Receive Date: 20210304
  Receipt Date: 20210304
  Transmission Date: 20210420
  Serious: Yes (Other)
  Sender: FDA-Public Use
  Company Number: None

PATIENT
  Age: 34 Year
  Sex: Female
  Weight: 81 kg

DRUGS (1)
  1. DDAVP RHINAL TUBE [Suspect]
     Active Substance: DESMOPRESSIN ACETATE
     Indication: DIABETES INSIPIDUS
     Dosage: ?          QUANTITY:0.1 ML;OTHER ROUTE:NASAL SPRAY?
     Dates: start: 20210129, end: 20210304

REACTIONS (10)
  - Nausea [None]
  - Blood sodium decreased [None]
  - Gait disturbance [None]
  - Dizziness [None]
  - Fluid retention [None]
  - Periorbital oedema [None]
  - Tremor [None]
  - Headache [None]
  - Vomiting [None]
  - Recalled product administered [None]

NARRATIVE: CASE EVENT DATE: 20210208
